FAERS Safety Report 5248621-0 (Version None)
Quarter: 2007Q1

REPORT INFORMATION
  Report Type: 
  Country: None (occurrence: None)
  Receive Date: 20070222
  Receipt Date: 20070206
  Transmission Date: 20070707
  Serious: Yes (Death, Hospitalization)
  Sender: FDA-Public Use
  Company Number: 2007-00298

PATIENT
  Age: 68 Year
  Sex: Female

DRUGS (29)
  1. VELCADE [Suspect]
     Indication: ACUTE MYELOID LEUKAEMIA
     Dosage: 3.30 MG, INTRAVENOUS
     Route: 042
     Dates: start: 20061211, end: 20070131
  2. QUININE SULFATE [Concomitant]
  3. BUMEX [Concomitant]
  4. ARIMIDEX [Concomitant]
  5. CELEBREX [Concomitant]
  6. LEVOXYL [Concomitant]
  7. PLAVIX [Concomitant]
  8. CATAPRES-TTS-1 [Concomitant]
  9. PROTONIX [Concomitant]
  10. FLEXERIL [Concomitant]
  11. DICYCLOMINE HYDROCHLORIDE [Concomitant]
  12. METOPROLOL SUCCINATE [Concomitant]
  13. NPH INSULIN [Concomitant]
  14. ALPHALGAN (BRIMONIDINE TARTRATE) [Concomitant]
  15. XALATAN [Concomitant]
  16. HUMALOG [Concomitant]
  17. FENTANYL [Concomitant]
  18. PERCOCET [Concomitant]
  19. VITAMIN B12 [Concomitant]
  20. VITAMIN E (VEGETABLE OIL) [Concomitant]
  21. STOOL SOFTNER (DOCUSATE SODIUM) [Concomitant]
  22. ASCORBIC ACID [Concomitant]
  23. MAGENSIUM [Concomitant]
  24. ARTICHOKE [Concomitant]
  25. LUTEINE (PROGESTERONE) [Concomitant]
  26. GINGER ROOT (GINGER) [Concomitant]
  27. GARLIC [Concomitant]
  28. B6 (PYRIDOXINE HYDROCHLORIDE) [Concomitant]
  29. GINKGO BILOBA [Concomitant]

REACTIONS (20)
  - ASPIRATION [None]
  - ASTHMA [None]
  - ATRIAL FIBRILLATION [None]
  - CARDIAC FAILURE CONGESTIVE [None]
  - CARDIO-RESPIRATORY ARREST [None]
  - CATHETER SITE HAEMORRHAGE [None]
  - DIASTOLIC DYSFUNCTION [None]
  - DILATATION VENTRICULAR [None]
  - HAEMATOCRIT DECREASED [None]
  - HYPOGLYCAEMIA [None]
  - MITRAL VALVE INCOMPETENCE [None]
  - ORAL INTAKE REDUCED [None]
  - PLATELET COUNT DECREASED [None]
  - PNEUMONIA [None]
  - PULMONARY ARTERIAL PRESSURE INCREASED [None]
  - REFUSAL OF TREATMENT BY RELATIVE [None]
  - RESPIRATORY ARREST [None]
  - TRICUSPID VALVE INCOMPETENCE [None]
  - UPPER RESPIRATORY TRACT INFECTION [None]
  - VOMITING [None]
